FAERS Safety Report 22706035 (Version 5)
Quarter: 2024Q1

REPORT INFORMATION
  Report Type: Spontaneous
  Country: DE (occurrence: DE)
  Receive Date: 20230714
  Receipt Date: 20240130
  Transmission Date: 20240410
  Serious: Yes (Disabling)
  Sender: FDA-Public Use
  Company Number: DE-009507513-2307DEU002768

PATIENT
  Sex: Male
  Weight: 90 kg

DRUGS (4)
  1. KEYTRUDA [Suspect]
     Active Substance: PEMBROLIZUMAB
     Dosage: UNK
     Dates: start: 20230515
  2. LENVATINIB MESYLATE [Suspect]
     Active Substance: LENVATINIB MESYLATE
     Indication: Renal cell carcinoma
     Dosage: 20 MILLIGRAM, FREQ. UNK
     Dates: start: 20230515
  3. APIXABAN [Concomitant]
     Active Substance: APIXABAN
     Indication: Hypertension
     Dosage: 2.5 MILLIGRAM
  4. HYDROCORTISONE [Concomitant]
     Active Substance: HYDROCORTISONE
     Dosage: 10 MILLIGRAM

REACTIONS (6)
  - Joint range of motion decreased [Not Recovered/Not Resolved]
  - Blood pressure inadequately controlled [Unknown]
  - Dry mouth [Not Recovered/Not Resolved]
  - Weight decreased [Not Recovered/Not Resolved]
  - Blood pressure increased [Not Recovered/Not Resolved]
  - Thyroid function test abnormal [Not Recovered/Not Resolved]

NARRATIVE: CASE EVENT DATE: 20230101
